FAERS Safety Report 9047343 (Version 1)
Quarter: 2013Q1

REPORT INFORMATION
  Report Type: Report from Study
  Country: US (occurrence: US)
  Receive Date: 20130131
  Receipt Date: 20130131
  Transmission Date: 20140127
  Serious: Yes (Other)
  Sender: FDA-Public Use
  Company Number: US-ABBOTT-12P-163-0980936-00

PATIENT
  Sex: Male
  Weight: 81.72 kg

DRUGS (4)
  1. HUMIRA [Suspect]
     Indication: PSORIATIC ARTHROPATHY
     Dates: start: 201010, end: 201105
  2. HUMIRA [Suspect]
     Dates: start: 201109
  3. LORTAB [Concomitant]
     Indication: PAIN
  4. ALBUTEROL INHALER [Concomitant]
     Indication: ASTHMA

REACTIONS (7)
  - Histoplasmosis [Recovered/Resolved]
  - Psoriasis [Not Recovered/Not Resolved]
  - Wheezing [Recovered/Resolved]
  - Cough [Recovered/Resolved]
  - Dyspnoea [Recovered/Resolved]
  - Lymphadenopathy [Recovering/Resolving]
  - Pneumonia [Recovered/Resolved]
